FAERS Safety Report 24703267 (Version 1)
Quarter: 2024Q4

REPORT INFORMATION
  Report Type: Report from Study
  Country: US (occurrence: US)
  Receive Date: 20241205
  Receipt Date: 20241205
  Transmission Date: 20250115
  Serious: Yes (Hospitalization)
  Sender: JOHNSON AND JOHNSON
  Company Number: US-JNJFOC-20241166839

PATIENT
  Age: 75 Year
  Sex: Female
  Weight: 83.915 kg

DRUGS (4)
  1. SELEXIPAG [Suspect]
     Active Substance: SELEXIPAG
     Indication: Pulmonary arterial hypertension
     Route: 048
  2. SELEXIPAG [Suspect]
     Active Substance: SELEXIPAG
     Route: 048
  3. SILDENAFIL CITRATE [Concomitant]
     Active Substance: SILDENAFIL CITRATE
     Indication: Product used for unknown indication
  4. OPSUMIT [Concomitant]
     Active Substance: MACITENTAN
     Indication: Product used for unknown indication

REACTIONS (7)
  - Dyspnoea [Unknown]
  - Swelling [Unknown]
  - Pain [Unknown]
  - Headache [Unknown]
  - Pain in extremity [Unknown]
  - Heart valve incompetence [Unknown]
  - Throat irritation [Unknown]

NARRATIVE: CASE EVENT DATE: 20241001
